FAERS Safety Report 19002871 (Version 1)
Quarter: 2021Q1

REPORT INFORMATION
  Report Type: Spontaneous
  Country: DE (occurrence: DE)
  Receive Date: 20210312
  Receipt Date: 20210312
  Transmission Date: 20210420
  Serious: Yes (Hospitalization)
  Sender: FDA-Public Use
  Company Number: DE-TEVA-2021-DE-1887338

PATIENT
  Age: 34 Month
  Sex: Female

DRUGS (1)
  1. CEFACLOR. [Suspect]
     Active Substance: CEFACLOR
     Indication: URINARY TRACT INFECTION
     Dates: start: 20201125, end: 20201201

REACTIONS (3)
  - Pruritus [Unknown]
  - Urticaria [Unknown]
  - Swelling [Unknown]

NARRATIVE: CASE EVENT DATE: 20201202
